FAERS Safety Report 15552217 (Version 2)
Quarter: 2019Q1

REPORT INFORMATION
  Report Type: Spontaneous
  Country: GB (occurrence: GB)
  Receive Date: 20181025
  Receipt Date: 20190129
  Transmission Date: 20190417
  Serious: Yes (Hospitalization, Other)
  Sender: FDA-Public Use
  Company Number: GB-ELI_LILLY_AND_COMPANY-GB201810006145

PATIENT
  Age: 32 Year
  Sex: Male

DRUGS (11)
  1. STRATTERA [Suspect]
     Active Substance: ATOMOXETINE HYDROCHLORIDE
     Indication: ATTENTION DEFICIT/HYPERACTIVITY DISORDER
     Dosage: 25 MG, ONE DOSE FOR A WEEK
     Route: 065
     Dates: start: 20120112
  2. STRATTERA [Suspect]
     Active Substance: ATOMOXETINE HYDROCHLORIDE
     Dosage: 20 MG, BID
     Route: 065
     Dates: start: 20130125
  3. QUETIAPINE. [Concomitant]
     Active Substance: QUETIAPINE
     Indication: PRODUCT USED FOR UNKNOWN INDICATION
     Dosage: 50 MG, DAILY
  4. STRATTERA [Suspect]
     Active Substance: ATOMOXETINE HYDROCHLORIDE
     Dosage: 60 MG, SINGLE
     Route: 065
     Dates: start: 20120607, end: 20120803
  5. STRATTERA [Suspect]
     Active Substance: ATOMOXETINE HYDROCHLORIDE
     Dosage: 60 MG, DAILY
     Route: 065
     Dates: start: 20130208
  6. STRATTERA [Suspect]
     Active Substance: ATOMOXETINE HYDROCHLORIDE
     Dosage: 60 MG, DAILY
     Route: 065
     Dates: start: 20130620
  7. STRATTERA [Suspect]
     Active Substance: ATOMOXETINE HYDROCHLORIDE
     Dosage: 80 MG, DAILY
     Route: 065
     Dates: start: 20140314
  8. STRATTERA [Suspect]
     Active Substance: ATOMOXETINE HYDROCHLORIDE
     Dosage: 160 MG, SINGLE
     Route: 065
     Dates: start: 20140310
  9. STRATTERA [Suspect]
     Active Substance: ATOMOXETINE HYDROCHLORIDE
     Dosage: 80 MG, DAILY
     Route: 065
     Dates: start: 20130304
  10. STRATTERA [Suspect]
     Active Substance: ATOMOXETINE HYDROCHLORIDE
     Dosage: 40 MG, DAILY
     Route: 065
     Dates: end: 20120605
  11. SERTRALINE [Concomitant]
     Active Substance: SERTRALINE HYDROCHLORIDE
     Indication: PRODUCT USED FOR UNKNOWN INDICATION
     Dosage: 50 MG, ON ALTERNATE DAYS ONLY FOR 4 TABLETS

REACTIONS (26)
  - Anger [Unknown]
  - Hostility [Unknown]
  - Suicidal ideation [Unknown]
  - Overdose [Unknown]
  - Anxiety [Unknown]
  - Delusion [Unknown]
  - Agitation [Unknown]
  - Hallucination [Unknown]
  - Depression [Unknown]
  - Irritability [Unknown]
  - Tremor [Unknown]
  - Gait disturbance [Unknown]
  - Abnormal behaviour [Unknown]
  - Euphoric mood [Unknown]
  - Mental disorder [Unknown]
  - Paranoia [Unknown]
  - Mania [Unknown]
  - Hypomania [Unknown]
  - Pruritus [Unknown]
  - Hyperhidrosis [Unknown]
  - Suicide attempt [Unknown]
  - Psychotic disorder [Unknown]
  - Tachyphrenia [Unknown]
  - Aggression [Unknown]
  - Prescribed overdose [Unknown]
  - Off label use [Unknown]

NARRATIVE: CASE EVENT DATE: 20120607
